FAERS Safety Report 18710929 (Version 2)
Quarter: 2021Q1

REPORT INFORMATION
  Report Type: Spontaneous
  Country: IT (occurrence: IT)
  Receive Date: 20210107
  Receipt Date: 20210113
  Transmission Date: 20210419
  Serious: Yes (Other)
  Sender: FDA-Public Use
  Company Number: IT-TEVA-2020-IT-1865062

PATIENT
  Age: 15 Year
  Sex: Female

DRUGS (29)
  1. METHOTREXATE. [Suspect]
     Active Substance: METHOTREXATE
     Indication: EPSTEIN-BARR VIRUS INFECTION
     Dosage: DURING COURSE?1
     Route: 065
  2. CYTARABINE. [Suspect]
     Active Substance: CYTARABINE
     Dosage: 3 G/M2 ONCE EVERY 12H, 4 DOSES, DURING COURSE?3 AND 6
     Route: 065
  3. VINDESINE [Suspect]
     Active Substance: VINDESINE
     Indication: EPSTEIN-BARR VIRUS INFECTION
     Dosage: 3MG/M2 ONCE
     Route: 065
  4. PREDNISOLONE. [Suspect]
     Active Substance: PREDNISOLONE
     Indication: DIFFUSE LARGE B-CELL LYMPHOMA
  5. DEXAMETHASONE. [Suspect]
     Active Substance: DEXAMETHASONE
     Dosage: 10 MG/M2 DAILY; DURING COURSE?5
     Route: 065
  6. IFOSFAMIDE. [Suspect]
     Active Substance: IFOSFAMIDE
     Indication: DIFFUSE LARGE B-CELL LYMPHOMA
     Dosage: 400 MG/M2/ DOSE DURING COURSE?4, ONCE EVERY 24 HOURS (Q24H) FOR 4 DAYS
     Route: 065
  7. DAUNORUBICIN [Suspect]
     Active Substance: DAUNORUBICIN
     Indication: DIFFUSE LARGE B-CELL LYMPHOMA
  8. ETOPOSIDE. [Suspect]
     Active Substance: ETOPOSIDE
     Dosage: 100 MG/M2 DURING COURSE 3 AND 6
     Route: 065
  9. DAUNORUBICIN [Suspect]
     Active Substance: DAUNORUBICIN
     Indication: EPSTEIN-BARR VIRUS INFECTION
     Dosage: 25 MG/M2, ONCE DURING COURSE?2 AND 5
     Route: 065
  10. METHOTREXATE. [Suspect]
     Active Substance: METHOTREXATE
     Indication: DIFFUSE LARGE B-CELL LYMPHOMA
     Dosage: DURING COURSE?4 OVER 24 HOURS
     Route: 065
  11. CYTARABINE. [Suspect]
     Active Substance: CYTARABINE
     Indication: EPSTEIN-BARR VIRUS INFECTION
     Dosage: 100 MG/M2/DOSE DURING COURSE?1
     Route: 065
  12. IFOSFAMIDE. [Suspect]
     Active Substance: IFOSFAMIDE
     Indication: EPSTEIN-BARR VIRUS INFECTION
     Dosage: 300 MG/M2/DOSE DURING COURSE?1
     Route: 065
  13. CYCLOPHOSPHAMIDE. [Suspect]
     Active Substance: CYCLOPHOSPHAMIDE
     Indication: DIFFUSE LARGE B-CELL LYMPHOMA
     Dosage: 200 MG/M2 DAILY; 200 MG/M2/DOSE, ONCE EVERY 24 HOURS FOR 5 DAYS DURING COURSE?5
     Route: 065
  14. METHOTREXATE. [Suspect]
     Active Substance: METHOTREXATE
     Dosage: 1G/M2 OVER 24 HOURS DURING COURSE?2 AND OVER 3 HOURS DURING COURSE?5
     Route: 065
  15. CALCIUM LEVOFOLINATE [Suspect]
     Active Substance: LEVOLEUCOVORIN CALCIUM
     Indication: DIFFUSE LARGE B-CELL LYMPHOMA
  16. CYTARABINE. [Suspect]
     Active Substance: CYTARABINE
     Indication: DIFFUSE LARGE B-CELL LYMPHOMA
     Dosage: 150 MG/KG/ DOSE DURING COURSE?4, ONCE EVERY 12 HOURS (Q12H), 2 DOSES
     Route: 065
  17. CYTARABINE. [Suspect]
     Active Substance: CYTARABINE
     Dosage: DURING ALL COURSES EXCEPT COURSE?1
     Route: 037
  18. METHOTREXATE. [Suspect]
     Active Substance: METHOTREXATE
     Dosage: DURING ALL COURSES EXCEPT COURSE?1
     Route: 037
  19. ETOPOSIDE. [Suspect]
     Active Substance: ETOPOSIDE
     Indication: EPSTEIN-BARR VIRUS INFECTION
     Dosage: 75 MG/M2 ONCE DURING COURSE?1
     Route: 065
  20. DEXAMETHASONE. [Suspect]
     Active Substance: DEXAMETHASONE
     Indication: DIFFUSE LARGE B-CELL LYMPHOMA
     Dosage: 5 MG/M2 DAILY; DURING COURSE?2 AND 4
     Route: 065
  21. DEXAMETHASONE. [Suspect]
     Active Substance: DEXAMETHASONE
     Dosage: 20 MG/M2 DAILY; DURING COURSE?3 AND 6
     Route: 065
  22. VINDESINE [Suspect]
     Active Substance: VINDESINE
     Indication: DIFFUSE LARGE B-CELL LYMPHOMA
  23. ETOPOSIDE. [Suspect]
     Active Substance: ETOPOSIDE
     Indication: DIFFUSE LARGE B-CELL LYMPHOMA
     Dosage: 100 MG/M2 ONCE DURING COURSE 4
     Route: 065
  24. CALCIUM LEVOFOLINATE [Suspect]
     Active Substance: LEVOLEUCOVORIN CALCIUM
     Indication: EPSTEIN-BARR VIRUS INFECTION
     Dosage: 7.5 MG/M2/DOSE, ONCE EVERY 6 HOURS FOR 10 DOSES, STARTED 24 HOURS AFTER THE END OF METHOTREXATE.
     Route: 065
  25. VINCRISTINE [Suspect]
     Active Substance: VINCRISTINE
     Indication: EPSTEIN-BARR VIRUS INFECTION
     Dosage: 1MG/M2, ONCE DURING COURSE 1, 2 AND 4
     Route: 065
  26. VINCRISTINE [Suspect]
     Active Substance: VINCRISTINE
     Indication: DIFFUSE LARGE B-CELL LYMPHOMA
     Dosage: 1.5MG/M2 ONCE DURING COURSE?5
     Route: 065
  27. DEXAMETHASONE. [Suspect]
     Active Substance: DEXAMETHASONE
     Indication: EPSTEIN-BARR VIRUS INFECTION
     Dosage: 5 MG/M2 DAILY; DURING COURSE?1
     Route: 065
  28. CYCLOPHOSPHAMIDE. [Suspect]
     Active Substance: CYCLOPHOSPHAMIDE
     Indication: EPSTEIN-BARR VIRUS INFECTION
     Dosage: 200 MG/M2 DAILY; 200 MG/M2/DOSE, ONCE EVERY 24 HOURS FOR 4 DAYS DURING COURSE?2
     Route: 065
  29. PREDNISOLONE. [Suspect]
     Active Substance: PREDNISOLONE
     Indication: EPSTEIN-BARR VIRUS INFECTION
     Dosage: DURING ALL COURSES EXCEPT COURSE?1
     Route: 037

REACTIONS (5)
  - Thrombocytopenia [Recovering/Resolving]
  - Mucosal inflammation [Recovering/Resolving]
  - Neutropenia [Recovering/Resolving]
  - Febrile neutropenia [Recovering/Resolving]
  - Anaemia [Recovering/Resolving]
